FAERS Safety Report 6856735-4 (Version None)
Quarter: 2010Q3

REPORT INFORMATION
  Report Type: 
  Country: None (occurrence: None)
  Receive Date: 20100719
  Receipt Date: 20100713
  Transmission Date: 20110219
  Serious: Yes (Hospitalization, Other)
  Sender: FDA-Public Use
  Company Number: US-BAYER-201025684NA

PATIENT
  Age: 59 Year
  Sex: Female

DRUGS (2)
  1. AVELOX [Suspect]
     Indication: URINARY TRACT INFECTION
     Dosage: TOTAL DAILY DOSE: 400 MG  UNIT DOSE: 400 MG
     Route: 048
     Dates: start: 20100501, end: 20100501
  2. EVISTA [Concomitant]
     Indication: OSTEOPOROSIS

REACTIONS (4)
  - ANAPHYLACTIC REACTION [None]
  - DYSPNOEA [None]
  - PRURITUS [None]
  - RASH [None]
